FAERS Safety Report 7235480-X (Version None)
Quarter: 2011Q1

REPORT INFORMATION
  Report Type: 
  Country: None (occurrence: None)
  Receive Date: 20110120
  Receipt Date: 20110106
  Transmission Date: 20110831
  Serious: Yes (Hospitalization)
  Sender: FDA-Public Use
  Company Number: PHFR2010IE04686

PATIENT
  Sex: Male

DRUGS (2)
  1. CLOZARIL [Suspect]
     Indication: SCHIZOPHRENIA
     Dosage: 275 MG (75 MG AM, 200 MG PM)
     Route: 048
     Dates: start: 20100924, end: 20101012
  2. HALOPERIDOL [Concomitant]
     Dosage: 10 MG
     Route: 048
     Dates: start: 20100101

REACTIONS (5)
  - BODY TEMPERATURE INCREASED [None]
  - TACHYCARDIA [None]
  - C-REACTIVE PROTEIN INCREASED [None]
  - CHEST PAIN [None]
  - ELECTROCARDIOGRAM T WAVE AMPLITUDE DECREASED [None]
